FAERS Safety Report 25191809 (Version 1)
Quarter: 2025Q2

REPORT INFORMATION
  Report Type: Spontaneous
  Country: IT (occurrence: IT)
  Receive Date: 20250414
  Receipt Date: 20250414
  Transmission Date: 20250717
  Serious: Yes (Hospitalization)
  Sender: MYLAN
  Company Number: IT-MYLANLABS-2025M1031059

PATIENT
  Age: 61 Year
  Sex: Female

DRUGS (2)
  1. LEVETIRACETAM [Suspect]
     Active Substance: LEVETIRACETAM
     Indication: Partial seizures
  2. DIAZEPAM [Concomitant]
     Active Substance: DIAZEPAM
     Indication: Partial seizures

REACTIONS (1)
  - Drug ineffective [Unknown]
